FAERS Safety Report 10383654 (Version 2)
Quarter: 2014Q3

REPORT INFORMATION
  Report Type: Spontaneous
  Country: GB (occurrence: None)
  Receive Date: 20140811
  Receipt Date: 20140820
  Transmission Date: 20150326
  Serious: Yes (Hospitalization, Other)
  Sender: FDA-Public Use
  Company Number: COL_16678_2014

PATIENT
  Age: 51 Year
  Sex: Female

DRUGS (1)
  1. COLGATE SENSITIVE WHITENING FOR SENSITIVE TEETH AND CAVITY PROTECTION [Suspect]
     Active Substance: POTASSIUM NITRATE\SODIUM FLUORIDE
     Indication: PRODUCT USED FOR UNKNOWN INDICATION
     Route: 048
     Dates: start: 201404, end: 201404

REACTIONS (14)
  - Glossodynia [None]
  - Hypoaesthesia oral [None]
  - No therapeutic response [None]
  - Tinnitus [None]
  - Ear discomfort [None]
  - Oral pain [None]
  - Gingival injury [None]
  - Unevaluable event [None]
  - Eye ulcer [None]
  - Head discomfort [None]
  - Corneal reflex decreased [None]
  - VIIth nerve paralysis [None]
  - Facial nerve disorder [None]
  - Product contamination physical [None]

NARRATIVE: CASE EVENT DATE: 201404
